FAERS Safety Report 12704035 (Version 1)
Quarter: 2016Q3

REPORT INFORMATION
  Report Type: Report from Study
  Country: US (occurrence: US)
  Receive Date: 20160831
  Receipt Date: 20160831
  Transmission Date: 20161109
  Serious: No
  Sender: FDA-Public Use
  Company Number: US-KAMADA LIMITED-2015US011162

PATIENT

DRUGS (16)
  1. DULERA [Concomitant]
     Active Substance: FORMOTEROL FUMARATE DIHYDRATE\MOMETASONE FUROATE
  2. ALEVE [Concomitant]
     Active Substance: NAPROXEN SODIUM
  3. ASPIRIN                            /00002701/ [Concomitant]
     Active Substance: ASPIRIN
  4. METAMUCIL [Concomitant]
     Active Substance: PLANTAGO SEED
  5. VENTOLIN [Concomitant]
     Active Substance: ALBUTEROL SULFATE
  6. FUROSEMIDE. [Concomitant]
     Active Substance: FUROSEMIDE
  7. MULTIVITAMIN                       /00097801/ [Concomitant]
     Active Substance: VITAMINS
  8. GLASSIA [Suspect]
     Active Substance: .ALPHA.1-PROTEINASE INHIBITOR HUMAN
     Indication: ALPHA-1 ANTI-TRYPSIN DEFICIENCY
     Dosage: WEEKLY
     Route: 042
  9. ATENOLOL. [Concomitant]
     Active Substance: ATENOLOL
  10. COENZYME Q10 [Concomitant]
     Active Substance: UBIDECARENONE
  11. PRAVASTATIN. [Concomitant]
     Active Substance: PRAVASTATIN
  12. IMITREX [Concomitant]
     Active Substance: SUMATRIPTAN SUCCINATE
  13. BLACK COHOSH                       /01456801/ [Concomitant]
     Active Substance: BLACK COHOSH
  14. ALCALAK [Concomitant]
  15. KRILL OIL [Concomitant]
     Active Substance: DIETARY SUPPLEMENT
  16. CALCIUM [Concomitant]
     Active Substance: CALCIUM

REACTIONS (1)
  - Tendonitis [Not Recovered/Not Resolved]

NARRATIVE: CASE EVENT DATE: 20151214
